FAERS Safety Report 10372612 (Version 1)
Quarter: 2014Q3

REPORT INFORMATION
  Report Type: Spontaneous
  Country: US (occurrence: US)
  Receive Date: 20140808
  Receipt Date: 20140808
  Transmission Date: 20150326
  Serious: Yes (Other)
  Sender: FDA-Public Use
  Company Number: US-BAXTER-2014BAX046126

PATIENT
  Age: 1 Year
  Sex: Male
  Weight: 13 kg

DRUGS (2)
  1. ADVATE [Suspect]
     Active Substance: ANTIHEMOPHILIC FACTOR, HUMAN RECOMBINANT
     Indication: FACTOR VIII DEFICIENCY
     Dosage: 500 UNITS
     Route: 065
  2. ADVATE [Suspect]
     Active Substance: ANTIHEMOPHILIC FACTOR, HUMAN RECOMBINANT
     Dosage: 750 UNITS
     Route: 065

REACTIONS (1)
  - Factor VIII inhibition [Unknown]

NARRATIVE: CASE EVENT DATE: 20140708
